FAERS Safety Report 20070794 (Version 1)
Quarter: 2021Q4

REPORT INFORMATION
  Report Type: Spontaneous
  Country: US (occurrence: None)
  Receive Date: 20211115
  Receipt Date: 20211115
  Transmission Date: 20220303
  Serious: No
  Sender: FDA-Public Use
  Company Number: None

PATIENT
  Age: 40 Year
  Sex: Male
  Weight: 95 kg

DRUGS (9)
  1. GLEOSTINE [Suspect]
     Active Substance: LOMUSTINE
     Indication: Brain neoplasm malignant
     Dosage: OTHER FREQUENCY : EVERY 6 WEEEKS;?
     Route: 048
     Dates: start: 20211021, end: 20211115
  2. AMLODIPINE BESYLATE [Concomitant]
     Active Substance: AMLODIPINE BESYLATE
  3. LEVETIRACETAM [Concomitant]
     Active Substance: LEVETIRACETAM
  4. ONDANSETRON HCL [Concomitant]
     Active Substance: ONDANSETRON HYDROCHLORIDE
  5. DEXAMETHASONE [Concomitant]
     Active Substance: DEXAMETHASONE
  6. BEVACIZUMAB-AWWB DOT ONC [Concomitant]
  7. SOdium Chloride (PF) [Concomitant]
  8. HEPARIN [Concomitant]
     Active Substance: HEPARIN SODIUM
  9. BUPRENORPHINE [Concomitant]
     Active Substance: BUPRENORPHINE

REACTIONS (1)
  - Disease progression [None]

NARRATIVE: CASE EVENT DATE: 20211115
